FAERS Safety Report 5441519-4 (Version None)
Quarter: 2007Q3

REPORT INFORMATION
  Report Type: 
  Country: None (occurrence: None)
  Receive Date: 20070829
  Receipt Date: 20070820
  Transmission Date: 20080115
  Serious: Yes (Hospitalization)
  Sender: FDA-Public Use
  Company Number: 2007BI006743

PATIENT
  Age: 25 Year
  Sex: Female

DRUGS (1)
  1. NATALIZUMAB [Suspect]
     Indication: MULTIPLE SCLEROSIS
     Dosage: 300 MG; QM; IV
     Route: 042
     Dates: start: 20070109, end: 20070522

REACTIONS (13)
  - AMNESIA [None]
  - CATHETER RELATED INFECTION [None]
  - DIPLOPIA [None]
  - DYSURIA [None]
  - FACIAL PALSY [None]
  - HYPOAESTHESIA [None]
  - LOCALISED INFECTION [None]
  - NAUSEA [None]
  - NERVOUS SYSTEM DISORDER [None]
  - OEDEMA PERIPHERAL [None]
  - PRURITUS [None]
  - THROMBOSIS [None]
  - VOMITING [None]
